FAERS Safety Report 6588287-0 (Version None)
Quarter: 2010Q1

REPORT INFORMATION
  Report Type: 
  Country: None (occurrence: None)
  Receive Date: 20100217
  Receipt Date: 20100217
  Transmission Date: 20100710
  Serious: Yes (Hospitalization)
  Sender: FDA-Public Use
  Company Number: None

PATIENT
  Age: 77 Year
  Sex: Male

DRUGS (2)
  1. BUPROPION HCL [Suspect]
     Indication: DEPRESSION
     Dosage: 100 MG TID PO
     Route: 048
     Dates: start: 20100201, end: 20100211
  2. BUSPIRONE HCL [Suspect]
     Dosage: 10 MG BID PO
     Route: 048
     Dates: start: 20070103

REACTIONS (4)
  - HEADACHE [None]
  - HYPERTENSION [None]
  - NAUSEA [None]
  - VOMITING [None]
